FAERS Safety Report 5137543-1 (Version None)
Quarter: 2006Q4

REPORT INFORMATION
  Report Type: 
  Country: None (occurrence: None)
  Receive Date: 20061030
  Receipt Date: 20051117
  Transmission Date: 20070319
  Serious: No
  Sender: FDA-Public Use
  Company Number: US-GLAXOSMITHKLINE-A0582767A

PATIENT
  Sex: Male

DRUGS (2)
  1. ADVAIR HFA [Suspect]
     Indication: ASTHMA
     Route: 055
  2. FLONASE [Concomitant]

REACTIONS (2)
  - PHARMACEUTICAL PRODUCT COMPLAINT [None]
  - THERAPEUTIC RESPONSE DECREASED [None]
